FAERS Safety Report 6925204-5 (Version None)
Quarter: 2010Q3

REPORT INFORMATION
  Report Type: 
  Country: None (occurrence: None)
  Receive Date: 20100816
  Receipt Date: 20100805
  Transmission Date: 20110219
  Serious: Yes (Hospitalization)
  Sender: FDA-Public Use
  Company Number: JP-AMGEN-US404580

PATIENT
  Sex: Female
  Weight: 50 kg

DRUGS (5)
  1. ENBREL [Suspect]
     Indication: RHEUMATOID ARTHRITIS
     Route: 058
     Dates: start: 20100122, end: 20100323
  2. HYPEN [Concomitant]
     Indication: RHEUMATOID ARTHRITIS
     Dosage: DOSE NOT PROVIDED
     Route: 048
  3. RIMATIL [Concomitant]
     Indication: RHEUMATOID ARTHRITIS
     Dosage: DOSE NOT PROVIDED
     Route: 048
  4. PREDNISOLONE [Concomitant]
     Route: 048
  5. BREDININ [Concomitant]
     Indication: RHEUMATOID ARTHRITIS
     Dosage: DOSE NOT PROVIDED
     Route: 048

REACTIONS (6)
  - CYTOMEGALOVIRUS ENTEROCOLITIS [None]
  - DRUG ERUPTION [None]
  - DRUG RASH WITH EOSINOPHILIA AND SYSTEMIC SYMPTOMS [None]
  - LIVER DISORDER [None]
  - ORAL MUCOSA EROSION [None]
  - PYREXIA [None]
